FAERS Safety Report 20493519 (Version 1)
Quarter: 2022Q1

REPORT INFORMATION
  Report Type: Spontaneous
  Country: US (occurrence: US)
  Receive Date: 20220221
  Receipt Date: 20220221
  Transmission Date: 20220423
  Serious: No
  Sender: FDA-Public Use
  Company Number: US-SANOFI-00973537

PATIENT
  Age: 46 Year
  Sex: Female

DRUGS (1)
  1. AUBAGIO [Suspect]
     Active Substance: TERIFLUNOMIDE

REACTIONS (4)
  - Insomnia [Unknown]
  - Hypoaesthesia [Unknown]
  - Burning sensation [Unknown]
  - Blood pressure abnormal [Unknown]
